FAERS Safety Report 18611070 (Version 1)
Quarter: 2020Q4

REPORT INFORMATION
  Report Type: Spontaneous
  Country: US (occurrence: US)
  Receive Date: 20201213
  Receipt Date: 20201213
  Transmission Date: 20210114
  Serious: Yes (Other)
  Sender: FDA-Public Use
  Company Number: None

PATIENT
  Age: 41 Year
  Sex: Female
  Weight: 74.25 kg

DRUGS (2)
  1. PAROEX [Suspect]
     Active Substance: CHLORHEXIDINE GLUCONATE
     Indication: IMPAIRED HEALING
     Dosage: ?          QUANTITY:2 ML;OTHER ROUTE:MOUTHWASH?
     Route: 048
     Dates: start: 20200915, end: 20201211
  2. IBUPROFEN. [Concomitant]
     Active Substance: IBUPROFEN

REACTIONS (2)
  - Noninfective gingivitis [None]
  - Impaired healing [None]

NARRATIVE: CASE EVENT DATE: 20201015
